FAERS Safety Report 8597329-2 (Version None)
Quarter: 2012Q3

REPORT INFORMATION
  Report Type: 
  Country: None (occurrence: None)
  Receive Date: 20120816
  Receipt Date: 20120813
  Transmission Date: 20120928
  Serious: No
  Sender: FDA-Public Use
  Company Number: US-PFIZER INC-2012167962

PATIENT
  Age: 53 Year
  Sex: Female
  Weight: 62 kg

DRUGS (6)
  1. ZOLOFT [Suspect]
     Indication: DEPRESSION
     Dosage: UNK
     Dates: start: 20100101, end: 20100101
  2. EFFEXOR [Suspect]
     Indication: DEPRESSION
     Dosage: UNK
     Dates: start: 20100101, end: 20100101
  3. WELLBUTRIN [Suspect]
     Indication: DEPRESSION
     Dosage: UNK
  4. METOPROLOL [Concomitant]
     Indication: HYPERTENSION
     Dosage: 25 MG, DAILY
  5. PAXIL [Suspect]
     Indication: DEPRESSION
     Dosage: UNK
  6. LEVOTHYROXINE [Concomitant]
     Indication: HYPERTHYROIDISM
     Dosage: 125 UG, DAILY

REACTIONS (4)
  - PALPITATIONS [None]
  - FEELING ABNORMAL [None]
  - WEIGHT INCREASED [None]
  - MALAISE [None]
